FAERS Safety Report 5671970-9 (Version None)
Quarter: 2008Q1

REPORT INFORMATION
  Report Type: 
  Country: None (occurrence: None)
  Receive Date: 20080317
  Receipt Date: 20080317
  Transmission Date: 20080703
  Serious: No
  Sender: FDA-Public Use
  Company Number: None

PATIENT
  Age: 78 Year
  Sex: Female
  Weight: 68.0396 kg

DRUGS (1)
  1. SYMBICORT [Suspect]
     Dosage: 2 PUFFS TWICE A DAY

REACTIONS (4)
  - CHAPPED LIPS [None]
  - HEART RATE INCREASED [None]
  - LIP SWELLING [None]
  - PARAESTHESIA ORAL [None]
